FAERS Safety Report 5246947-8 (Version None)
Quarter: 2007Q1

REPORT INFORMATION
  Report Type: 
  Country: None (occurrence: None)
  Receive Date: 20070226
  Receipt Date: 20070220
  Transmission Date: 20070707
  Serious: Yes (Life-Threatening, Hospitalization, Disabling, Other)
  Sender: FDA-Public Use
  Company Number: US-PFIZER INC-2006141645

PATIENT
  Sex: Female
  Weight: 101.2 kg

DRUGS (1)
  1. CELEBREX [Suspect]
     Indication: ARTHRITIS
     Dates: start: 20030101, end: 20050601

REACTIONS (10)
  - ANXIETY [None]
  - ARTHRITIS [None]
  - CHEST PAIN [None]
  - DYSPNOEA [None]
  - FOOT OPERATION [None]
  - LOSS OF CONSCIOUSNESS [None]
  - MEMORY IMPAIRMENT [None]
  - MYOCARDIAL INFARCTION [None]
  - VISION BLURRED [None]
  - WHEELCHAIR USER [None]
